FAERS Safety Report 16739424 (Version 1)
Quarter: 2019Q3

REPORT INFORMATION
  Report Type: Report from Study
  Country: US (occurrence: US)
  Receive Date: 20190826
  Receipt Date: 20190826
  Transmission Date: 20191005
  Serious: Yes (Other)
  Sender: FDA-Public Use
  Company Number: US-ROCHE-2387953

PATIENT

DRUGS (4)
  1. DIAZEPAM. [Suspect]
     Active Substance: DIAZEPAM
     Indication: PREMEDICATION
     Dosage: DISSOLVED IN PROPYLENE GLYCOL (VALIUM) OR IN POLYETHYLENE GLYCOL (DIAPAM)
     Route: 042
  2. FLUNITRAZEPAM [Suspect]
     Active Substance: FLUNITRAZEPAM
     Indication: PREMEDICATION
     Route: 042
  3. THIOPENTONE [THIOPENTAL] [Suspect]
     Active Substance: THIOPENTAL
     Indication: GENERAL ANAESTHESIA
     Route: 042
  4. ETOMIDATE. [Suspect]
     Active Substance: ETOMIDATE
     Indication: GENERAL ANAESTHESIA
     Route: 042

REACTIONS (3)
  - Thrombophlebitis [Unknown]
  - Phlebitis [Unknown]
  - Thrombosis [Unknown]
